FAERS Safety Report 21118504 (Version 2)
Quarter: 2022Q4

REPORT INFORMATION
  Report Type: Spontaneous
  Country: US (occurrence: US)
  Receive Date: 20220722
  Receipt Date: 20221003
  Transmission Date: 20230113
  Serious: Yes (Other)
  Sender: FDA-Public Use
  Company Number: US-Vifor (International) Inc.-VIT-2022-05065

PATIENT
  Age: 44 Year
  Sex: Female
  Weight: 75.5 kg

DRUGS (4)
  1. MIRCERA [Suspect]
     Active Substance: METHOXY POLYETHYLENE GLYCOL-EPOETIN BETA
     Indication: Nephrogenic anaemia
     Dosage: DOSE LOWER THAN 225 MCG
     Route: 042
     Dates: start: 20220514
  2. MIRCERA [Suspect]
     Active Substance: METHOXY POLYETHYLENE GLYCOL-EPOETIN BETA
     Dosage: DOSE NUMBER: 04, DOSE CATEGORY: 04
     Route: 042
     Dates: start: 20220611, end: 20220611
  3. VENOFER [Suspect]
     Active Substance: IRON SUCROSE
     Indication: Nephrogenic anaemia
     Dosage: 2 TO 3 MINUTES DURATION.
     Route: 040
     Dates: start: 20220602, end: 20220623
  4. HECTOROL [Concomitant]
     Active Substance: DOXERCALCIFEROL

REACTIONS (3)
  - Drug hypersensitivity [Recovered/Resolved]
  - Tachycardia [Recovered/Resolved]
  - Arrhythmia [Recovered/Resolved]

NARRATIVE: CASE EVENT DATE: 20220611
